FAERS Safety Report 14369454 (Version 1)
Quarter: 2018Q1

REPORT INFORMATION
  Report Type: Spontaneous
  Country: US (occurrence: US)
  Receive Date: 20180110
  Receipt Date: 20180110
  Transmission Date: 20180509
  Serious: Yes (Hospitalization)
  Sender: FDA-Public Use
  Company Number: US-VIFOR (INTERNATIONAL) INC.-VIT-2017-14487

PATIENT
  Sex: Male

DRUGS (7)
  1. CLONIDINE HYDROCHLORIDE. [Concomitant]
     Active Substance: CLONIDINE HYDROCHLORIDE
  2. ISRADIPINE. [Concomitant]
     Active Substance: ISRADIPINE
  3. VELTASSA [Suspect]
     Active Substance: PATIROMER
     Indication: CHRONIC KIDNEY DISEASE
     Route: 048
     Dates: start: 20170809
  4. ACETYLSALICYLIC ACID [Concomitant]
     Active Substance: ASPIRIN
  5. CYPROHEPTADINE HYDROCHLORIDE. [Concomitant]
     Active Substance: CYPROHEPTADINE HYDROCHLORIDE
  6. TUMS [Concomitant]
     Active Substance: CALCIUM CARBONATE
  7. ENALAPRIL MALEATE. [Concomitant]
     Active Substance: ENALAPRIL MALEATE

REACTIONS (2)
  - Hospitalisation [Unknown]
  - Off label use [Unknown]

NARRATIVE: CASE EVENT DATE: 2017
